FAERS Safety Report 5163693-X (Version None)
Quarter: 2006Q4

REPORT INFORMATION
  Report Type: 
  Country: None (occurrence: None)
  Receive Date: 20061204
  Receipt Date: 20010521
  Transmission Date: 20070319
  Serious: Yes (Death, Hospitalization)
  Sender: FDA-Public Use
  Company Number: FR-GLAXOSMITHKLINE-B0108867A

PATIENT
  Age: 1 Day
  Sex: Male
  Weight: 2.5 kg

DRUGS (13)
  1. ZIDOVUDINE [Suspect]
     Indication: ANTIVIRAL PROPHYLAXIS
     Route: 048
     Dates: start: 20010305, end: 20010404
  2. DIDANOSINE [Suspect]
     Indication: HIV INFECTION
     Route: 048
  3. NEVIRAPINE [Suspect]
     Indication: HIV INFECTION
     Route: 048
  4. RITONAVIR [Suspect]
     Indication: HIV INFECTION
     Route: 048
  5. SAQUINAVIR [Suspect]
     Indication: HIV INFECTION
     Route: 065
  6. SALBUTAMOL [Concomitant]
     Route: 065
  7. BACTRIM [Concomitant]
     Route: 065
  8. BECLOMETHASONE DIPROPIONATE [Concomitant]
     Route: 065
  9. AMOXICILLIN [Concomitant]
     Route: 065
  10. CHLORQUINALDOL + PROMESTRIENE [Concomitant]
     Route: 065
  11. IRON [Concomitant]
     Route: 065
  12. FOLIC ACID [Concomitant]
     Route: 065
  13. CHOLECALCIFEROL [Concomitant]
     Route: 065

REACTIONS (9)
  - ANAEMIA [None]
  - CARDIAC MURMUR [None]
  - HEPATOMEGALY [None]
  - HYPERLACTACIDAEMIA [None]
  - LIPASE INCREASED [None]
  - MITOCHONDRIAL CYTOPATHY [None]
  - NEUTROPENIA [None]
  - SUDDEN DEATH [None]
  - TREMOR [None]
